FAERS Safety Report 9505673 (Version 1)
Quarter: 2013Q1

REPORT INFORMATION
  Report Type: Spontaneous
  Country: US (occurrence: None)
  Receive Date: 20130225
  Receipt Date: 20130225
  Transmission Date: 20140127
  Serious: No
  Sender: FDA-Public Use
  Company Number: 367227

PATIENT
  Age: 68 Year
  Sex: Male

DRUGS (9)
  1. VICTOZA (LIRAGLUTIDE) SOLUTION FOR INJECTION, 6MG/ML [Suspect]
     Indication: TYPE 2 DIABETES MELLITUS
     Route: 058
     Dates: start: 201105
  2. CARVEDILOL (CARBEDILOL) [Concomitant]
  3. GABAPENTIN (GABAPENTIN) [Concomitant]
  4. GLYBURIDE (GLIBENCLAMIDE) [Concomitant]
  5. LISINOPRIL (LISINOPRIL) [Concomitant]
  6. LOMOTIL (ATROPINE SULFATE, DIPHENOXYLATE HYDROCHLORIDE) [Concomitant]
  7. MELATONIN (MELATONIN) [Concomitant]
  8. TESTOSTERONE (TESTOSTERONE) [Concomitant]
  9. ZOCOR (SIMVASTATIN) [Concomitant]

REACTIONS (1)
  - Laryngeal disorder [None]
